FAERS Safety Report 10606208 (Version 1)
Quarter: 2014Q4

REPORT INFORMATION
  Report Type: Spontaneous
  Country: US (occurrence: US)
  Receive Date: 20141125
  Receipt Date: 20141125
  Transmission Date: 20150529
  Serious: Yes (Other)
  Sender: FDA-Public Use
  Company Number: US-CELGENE-USA-2014113658

PATIENT
  Sex: Female
  Weight: 47.22 kg

DRUGS (1)
  1. OTEZLA [Suspect]
     Active Substance: APREMILAST
     Indication: PSORIATIC ARTHROPATHY
     Dosage: 60 MILLIGRAM
     Route: 048
     Dates: start: 20140826, end: 20141022

REACTIONS (5)
  - Presyncope [Unknown]
  - Night sweats [Unknown]
  - Dyspnoea [Unknown]
  - Disturbance in attention [Unknown]
  - Headache [Unknown]
